FAERS Safety Report 9422184 (Version 2)
Quarter: 2013Q3

REPORT INFORMATION
  Report Type: Spontaneous
  Country: JP (occurrence: JP)
  Receive Date: 20130726
  Receipt Date: 20130807
  Transmission Date: 20140515
  Serious: Yes (Death, Other)
  Sender: FDA-Public Use
  Company Number: PHHY2011JP22090

PATIENT
  Age: 59 Year
  Sex: Male

DRUGS (3)
  1. EXJADE [Suspect]
     Indication: IRON OVERLOAD
     Dosage: 1000 MG, DAILY
     Route: 048
     Dates: start: 20110303, end: 20110312
  2. EXJADE [Suspect]
     Dosage: 500 MG, OD
     Route: 048
  3. EXJADE [Suspect]
     Dosage: UNK UKN, UNK
     Route: 048

REACTIONS (3)
  - Respiratory failure [Fatal]
  - Pneumonia aspiration [Unknown]
  - Rash [Recovered/Resolved]
